FAERS Safety Report 16973672 (Version 3)
Quarter: 2019Q4

REPORT INFORMATION
  Report Type: Spontaneous
  Country: ES (occurrence: ES)
  Receive Date: 20191030
  Receipt Date: 20191220
  Transmission Date: 20200122
  Serious: Yes (Other)
  Sender: FDA-Public Use
  Company Number: ES-BIOGEN-2019BI00801077

PATIENT
  Age: 34 Year
  Sex: Female

DRUGS (2)
  1. HIDROFEROL [Concomitant]
     Active Substance: CALCIFEDIOL
     Indication: PRODUCT USED FOR UNKNOWN INDICATION
     Route: 065
  2. TECFIDERA [Suspect]
     Active Substance: DIMETHYL FUMARATE
     Indication: RELAPSING-REMITTING MULTIPLE SCLEROSIS
     Route: 048
     Dates: start: 201706, end: 201909

REACTIONS (2)
  - Abortion spontaneous [Recovered/Resolved]
  - Maternal exposure during pregnancy [Recovered/Resolved]

NARRATIVE: CASE EVENT DATE: 201909
